FAERS Safety Report 5862836-X (Version None)
Quarter: 2008Q3

REPORT INFORMATION
  Report Type: 
  Country: None (occurrence: None)
  Receive Date: 20080828
  Receipt Date: 20080822
  Transmission Date: 20090109
  Serious: Yes (Hospitalization)
  Sender: FDA-Public Use
  Company Number: A0696648A

PATIENT
  Age: 57 Year
  Sex: Male
  Weight: 81.4 kg

DRUGS (1)
  1. AVANDAMET [Suspect]
     Route: 048
     Dates: start: 20070212, end: 20070519

REACTIONS (1)
  - MYOCARDIAL INFARCTION [None]
